FAERS Safety Report 12499565 (Version 1)
Quarter: 2016Q2

REPORT INFORMATION
  Report Type: Spontaneous
  Country: US (occurrence: None)
  Receive Date: 20160624
  Receipt Date: 20160624
  Transmission Date: 20160815
  Serious: No
  Sender: FDA-Public Use
  Company Number: None

PATIENT
  Sex: Female
  Weight: 65.5 kg

DRUGS (1)
  1. GENERIC OF CORTEF (HYDROCORTISONE) 5 MG [Suspect]
     Active Substance: HYDROCORTISONE
     Route: 048

REACTIONS (3)
  - Laboratory test abnormal [None]
  - Feeling abnormal [None]
  - Product substitution issue [None]
